FAERS Safety Report 4940874-9 (Version None)
Quarter: 2006Q1

REPORT INFORMATION
  Report Type: 
  Country: None (occurrence: None)
  Receive Date: 20060313
  Receipt Date: 20060206
  Transmission Date: 20060701
  Serious: Yes (Other)
  Sender: FDA-Public Use
  Company Number: PHBS2006RU02161

PATIENT
  Age: 30 Year
  Sex: Female
  Weight: 44 kg

DRUGS (3)
  1. LAMISIL [Suspect]
     Indication: NAIL TINEA
     Dosage: 250 MG/DAY
     Route: 048
     Dates: start: 20051101, end: 20060301
  2. LAMISIL [Suspect]
     Indication: ONYCHOMYCOSIS
     Dosage: UNK, QD
     Route: 061
     Dates: start: 20051101, end: 20060201
  3. EXODERIL (NGX) [Suspect]
     Indication: ONYCHOMYCOSIS
     Dosage: UNK, BID
     Route: 061
     Dates: start: 20051101, end: 20060301

REACTIONS (2)
  - ABORTION INDUCED [None]
  - DRUG EXPOSURE DURING PREGNANCY [None]
